FAERS Safety Report 5855669-1 (Version None)
Quarter: 2008Q3

REPORT INFORMATION
  Report Type: 
  Country: None (occurrence: None)
  Receive Date: 20080823
  Receipt Date: 20080818
  Transmission Date: 20090109
  Serious: Yes (Other)
  Sender: FDA-Public Use
  Company Number: US-ELI_LILLY_AND_COMPANY-US200807005733

PATIENT
  Age: 52 Year
  Sex: Female
  Weight: 98.866 kg

DRUGS (8)
  1. BYETTA [Suspect]
     Indication: TYPE 2 DIABETES MELLITUS
     Dosage: 5 UG, UNKNOWN
     Dates: start: 20080505, end: 20080519
  2. ACTOS [Concomitant]
     Dosage: 45 MG, DAILY (1/D)
     Route: 048
  3. GLYBURIDE AND METFORMIN HCL [Concomitant]
     Dosage: UNK, 2/D
     Route: 048
  4. COREG [Concomitant]
     Dosage: 12.5 MG, 2/D
     Route: 048
  5. DIOVAN [Concomitant]
     Dosage: UNK, DAILY (1/D)
     Route: 048
  6. SIMVASTATIN [Concomitant]
     Dosage: 40 MG, EACH EVENING
     Route: 048
  7. LEXAPRO [Concomitant]
     Dosage: 10 MG, DAILY (1/D)
     Route: 048
  8. BONIVA [Concomitant]
     Dosage: UNK, DAILY (1/D)
     Route: 048

REACTIONS (5)
  - BLOOD CREATININE INCREASED [None]
  - BLOOD UREA INCREASED [None]
  - DIZZINESS [None]
  - PANCREATITIS [None]
  - WEIGHT DECREASED [None]
